FAERS Safety Report 17065183 (Version 2)
Quarter: 2019Q4

REPORT INFORMATION
  Report Type: Spontaneous
  Country: GB (occurrence: GB)
  Receive Date: 20191122
  Receipt Date: 20191230
  Transmission Date: 20200122
  Serious: Yes (Hospitalization)
  Sender: FDA-Public Use
  Company Number: GB-EMD SERONO-9129074

PATIENT
  Sex: Male

DRUGS (1)
  1. MAVENCLAD [Suspect]
     Active Substance: CLADRIBINE
     Indication: MULTIPLE SCLEROSIS
     Dosage: FIRST YEAR FIRST WEEK THERAPY: TWO TABLETS ON DAY 1 AND ONE TABLET ON DAYS 2 TO 5 (EACH OF 10 MG)
     Route: 048
     Dates: start: 20191025

REACTIONS (1)
  - Multiple sclerosis relapse [Unknown]
